FAERS Safety Report 20914010 (Version 2)
Quarter: 2022Q2

REPORT INFORMATION
  Report Type: Spontaneous
  Country: US (occurrence: US)
  Receive Date: 20220604
  Receipt Date: 20220621
  Transmission Date: 20220721
  Serious: Yes (Other)
  Sender: FDA-Public Use
  Company Number: US-COOPERSURGICAL, INC.-US-2022CPS001092

PATIENT
  Age: 48 Year
  Sex: Female
  Weight: 58.957 kg

DRUGS (1)
  1. PARAGARD T 380A [Suspect]
     Active Substance: COPPER
     Indication: Contraception
     Dosage: UNK
     Route: 015
     Dates: start: 20150910, end: 20220330

REACTIONS (12)
  - Ophthalmic herpes simplex [Unknown]
  - Injury associated with device [Unknown]
  - Deformity [Unknown]
  - Device breakage [Recovered/Resolved]
  - Foreign body in reproductive tract [Recovered/Resolved]
  - Complication of device removal [Recovered/Resolved]
  - Pain [Unknown]
  - Reproductive complication associated with device [Unknown]
  - Anxiety [Unknown]
  - Economic problem [Unknown]
  - Device expulsion [Recovered/Resolved]
  - Menopause [Not Recovered/Not Resolved]

NARRATIVE: CASE EVENT DATE: 20190101
